FAERS Safety Report 7684082-X (Version None)
Quarter: 2011Q3

REPORT INFORMATION
  Report Type: 
  Country: None (occurrence: None)
  Receive Date: 20110815
  Receipt Date: 20110808
  Transmission Date: 20111222
  Serious: Yes (Hospitalization, Other)
  Sender: FDA-Public Use
  Company Number: US-BAYER-201041623NA

PATIENT
  Sex: Female
  Weight: 106.58 kg

DRUGS (3)
  1. ZOLOFT [Concomitant]
     Indication: ANXIETY
  2. YASMIN [Suspect]
     Indication: ACNE
     Dosage: UNK
     Dates: start: 20060101, end: 20070101
  3. ZOLOFT [Concomitant]
     Indication: STRESS

REACTIONS (4)
  - MENTAL DISORDER [None]
  - GALLBLADDER DISORDER [None]
  - DEPRESSION [None]
  - ANXIETY [None]
